FAERS Safety Report 5692922-9 (Version None)
Quarter: 2008Q2

REPORT INFORMATION
  Report Type: 
  Country: None (occurrence: None)
  Receive Date: 20080326
  Receipt Date: 20080114
  Transmission Date: 20081010
  Serious: Yes (Other)
  Sender: FDA-Public Use
  Company Number: 20080011

PATIENT
  Age: 85 Year
  Sex: Male
  Weight: 78.0187 kg

DRUGS (3)
  1. DEXFERRUM [Suspect]
     Indication: IRON DEFICIENCY ANAEMIA
     Dosage: 30 MIN INTRAVENOUS
     Route: 042
     Dates: start: 20080111, end: 20080111
  2. LEVOTHYROXINE SODIUM [Concomitant]
  3. ORAL IRON [Concomitant]

REACTIONS (1)
  - ANAPHYLACTOID REACTION [None]
